FAERS Safety Report 7491151-6 (Version None)
Quarter: 2011Q2

REPORT INFORMATION
  Report Type: 
  Country: None (occurrence: None)
  Receive Date: 20110518
  Receipt Date: 20110518
  Transmission Date: 20111010
  Serious: No
  Sender: FDA-Public Use
  Company Number: None

PATIENT

DRUGS (2)
  1. LOVENOX [Suspect]
     Dosage: 0.4ML DAILY OR 2 X DAILY SQ
     Route: 058
     Dates: start: 20110517, end: 20110517
  2. ENOXAPARIN [Suspect]
     Dosage: 0.6ML DAILY OR 2 DAILY SQ
     Route: 058

REACTIONS (3)
  - MEDICATION ERROR [None]
  - CIRCUMSTANCE OR INFORMATION CAPABLE OF LEADING TO MEDICATION ERROR [None]
  - PRODUCT COLOUR ISSUE [None]
